FAERS Safety Report 7370791-9 (Version None)
Quarter: 2011Q1

REPORT INFORMATION
  Report Type: 
  Country: None (occurrence: None)
  Receive Date: 20110324
  Receipt Date: 20110321
  Transmission Date: 20110831
  Serious: Yes (Hospitalization)
  Sender: FDA-Public Use
  Company Number: US-BIOGENIDEC-2010BI034757

PATIENT
  Age: 46 Year
  Sex: Female

DRUGS (10)
  1. TYSABRI [Suspect]
     Indication: MULTIPLE SCLEROSIS
     Route: 042
     Dates: start: 20090811
  2. BACLOFEN [Concomitant]
     Route: 048
     Dates: start: 20091123
  3. VITAMIN B-12 [Concomitant]
     Indication: SUPPLEMENTATION THERAPY
     Dates: start: 20091201
  4. PROZAC [Concomitant]
     Indication: DEPRESSION
     Route: 048
  5. BACLOFEN [Concomitant]
     Indication: MUSCLE SPASTICITY
     Route: 048
     Dates: start: 20091123
  6. ACIDOPHILUS [Concomitant]
     Indication: SUPPLEMENTATION THERAPY
     Route: 048
  7. CYMBALTA [Concomitant]
     Indication: PAIN
     Route: 048
     Dates: start: 20090520
  8. CALCIUM [Concomitant]
     Indication: SUPPLEMENTATION THERAPY
     Route: 048
  9. MULTI-VITAMIN [Concomitant]
     Indication: SUPPLEMENTATION THERAPY
     Route: 048
  10. NEXIUM [Concomitant]
     Indication: PROPHYLAXIS
     Route: 048

REACTIONS (1)
  - RECTAL HAEMORRHAGE [None]
